FAERS Safety Report 7379022-7 (Version None)
Quarter: 2011Q1

REPORT INFORMATION
  Report Type: 
  Country: None (occurrence: None)
  Receive Date: 20110328
  Receipt Date: 20110318
  Transmission Date: 20110831
  Serious: Yes (Other)
  Sender: FDA-Public Use
  Company Number: NL-GENZYME-CLOF-1001350

PATIENT
  Sex: Female
  Weight: 70 kg

DRUGS (4)
  1. IDARUBICIN HCL [Suspect]
     Indication: ACUTE MYELOID LEUKAEMIA
     Dosage: 21 MG, QD
     Route: 042
     Dates: start: 20101201, end: 20101201
  2. HYDROXYCARBAMIDE [Suspect]
     Indication: ACUTE MYELOID LEUKAEMIA
     Route: 065
  3. EVOLTRA [Suspect]
     Indication: ACUTE MYELOID LEUKAEMIA
     Dosage: 18 MG, QD
     Route: 042
     Dates: start: 20101201, end: 20101201
  4. CYTARABINE [Suspect]
     Indication: ACUTE MYELOID LEUKAEMIA
     Dosage: 350 MG, QD
     Route: 042
     Dates: start: 20101201, end: 20101202

REACTIONS (3)
  - HAEMOGLOBIN DECREASED [None]
  - MYOCARDIAL ISCHAEMIA [None]
  - FEBRILE NEUTROPENIA [None]
